FAERS Safety Report 20675457 (Version 4)
Quarter: 2022Q3

REPORT INFORMATION
  Report Type: Report from Study
  Country: FR (occurrence: FR)
  Receive Date: 20220405
  Receipt Date: 20220804
  Transmission Date: 20221027
  Serious: Yes (Hospitalization, Other)
  Sender: FDA-Public Use
  Company Number: FR-BRISTOL-MYERS SQUIBB COMPANY-BMS-2022-027522

PATIENT
  Age: 70 Year
  Sex: Male
  Weight: 92 kg

DRUGS (3)
  1. DOCETAXEL [Suspect]
     Active Substance: DOCETAXEL
     Indication: Prostate cancer
     Route: 065
     Dates: start: 20211215, end: 20220126
  2. PREDNISONE [Concomitant]
     Active Substance: PREDNISONE
     Indication: Prostate cancer
     Dosage: 15-DEC-2021 TO 04-JAN-2022?26-JAN-2022 TO 15-FEB-2022
     Route: 065
     Dates: start: 20211215, end: 20220215
  3. AUGMENTIN [Concomitant]
     Active Substance: AMOXICILLIN\CLAVULANATE POTASSIUM
     Indication: Cough
     Route: 048
     Dates: start: 20210215

REACTIONS (3)
  - Pneumocystis jirovecii pneumonia [Recovered/Resolved]
  - General physical health deterioration [Recovered/Resolved with Sequelae]
  - Dyspnoea [Recovered/Resolved]

NARRATIVE: CASE EVENT DATE: 20220218
